FAERS Safety Report 4684793-4 (Version None)
Quarter: 2005Q2

REPORT INFORMATION
  Report Type: 
  Country: None (occurrence: None)
  Receive Date: 20050606
  Receipt Date: 20050308
  Transmission Date: 20051028
  Serious: No
  Sender: FDA-Public Use
  Company Number: USA050188529

PATIENT
  Age: 68 Year
  Sex: Male

DRUGS (14)
  1. ALIMTA [Suspect]
     Indication: NON-SMALL CELL LUNG CANCER
     Dates: start: 20050101, end: 20050101
  2. DEXAMETHASONE [Concomitant]
  3. VITAMIN B-12 [Concomitant]
  4. FOLIC ACID [Concomitant]
  5. LORAZEPAM [Concomitant]
  6. KCL (POTASSIUM CHLORIDE) [Concomitant]
  7. MAXZIDE [Concomitant]
  8. REGLAN [Concomitant]
  9. EFFEXOR XR [Concomitant]
  10. RISPERDAL [Concomitant]
  11. MS CONTIN (MORPHIN SULFATE) [Concomitant]
  12. PRILOSEC (OMEPRAZOLE RATIOPHARM) [Concomitant]
  13. RESTORIL [Concomitant]
  14. PREDNISONE [Concomitant]

REACTIONS (5)
  - ANOREXIA [None]
  - LEUKOPENIA [None]
  - NAUSEA [None]
  - RASH MACULAR [None]
  - THROMBOCYTOPENIA [None]
